FAERS Safety Report 21256467 (Version 1)
Quarter: 2022Q3

REPORT INFORMATION
  Report Type: Spontaneous
  Country: FR (occurrence: FR)
  Receive Date: 20220826
  Receipt Date: 20220826
  Transmission Date: 20221027
  Serious: Yes (Other)
  Sender: FDA-Public Use
  Company Number: FR-AFSSAPS-DJ20221552

PATIENT
  Age: 57 Year
  Sex: Female

DRUGS (3)
  1. ACETAMINOPHEN [Suspect]
     Active Substance: ACETAMINOPHEN
     Indication: Toothache
     Dosage: 4 GRAM, ONCE A DAY
     Route: 048
     Dates: start: 202201, end: 202201
  2. NAPROXEN [Suspect]
     Active Substance: NAPROXEN
     Indication: Toothache
     Dosage: 2 DOSAGE FORM
     Route: 048
     Dates: start: 202201, end: 202201
  3. ERYTHROMYCIN [Suspect]
     Active Substance: ERYTHROMYCIN
     Indication: Dental operation
     Route: 048
     Dates: start: 202201, end: 202201

REACTIONS (1)
  - Hepatocellular injury [Recovered/Resolved]

NARRATIVE: CASE EVENT DATE: 20220122
